FAERS Safety Report 10031661 (Version 2)
Quarter: 2014Q2

REPORT INFORMATION
  Report Type: Spontaneous
  Country: US (occurrence: US)
  Receive Date: 20140324
  Receipt Date: 20140414
  Transmission Date: 20141212
  Serious: No
  Sender: FDA-Public Use
  Company Number: US-009507513-1403USA010426

PATIENT
  Sex: Female

DRUGS (2)
  1. OXYTROL FOR WOMEN [Suspect]
     Indication: BLADDER DISORDER
     Dosage: UNK, UNKNOWN
     Route: 062
  2. OXYTROL FOR WOMEN [Suspect]
     Indication: NOCTURIA

REACTIONS (1)
  - Drug effect delayed [Unknown]
